FAERS Safety Report 23823237 (Version 2)
Quarter: 2024Q3

REPORT INFORMATION
  Report Type: Spontaneous
  Country: JP (occurrence: JP)
  Receive Date: 20240507
  Receipt Date: 20240823
  Transmission Date: 20241017
  Serious: Yes (Death, Other)
  Sender: NOVO NORDISK
  Company Number: JP-NOVOPROD-1205181

PATIENT
  Age: 20 Year
  Sex: Female
  Weight: 116.5 kg

DRUGS (14)
  1. NORDITROPIN [Suspect]
     Active Substance: SOMATROPIN
     Indication: Growth hormone deficiency
     Dosage: 0.3 MG, QD
     Route: 058
     Dates: start: 20201215
  2. NORDITROPIN [Suspect]
     Active Substance: SOMATROPIN
     Dosage: UNK
     Dates: end: 20240304
  3. NORDITROPIN [Suspect]
     Active Substance: SOMATROPIN
     Dosage: 0.3 MG, QD
     Route: 058
     Dates: start: 20210817
  4. NORDITROPIN [Suspect]
     Active Substance: SOMATROPIN
     Dosage: 0.35 MG, QD
     Route: 058
     Dates: start: 20211019
  5. NORDITROPIN [Suspect]
     Active Substance: SOMATROPIN
     Dosage: 0.5 MG, QD
     Route: 058
     Dates: start: 20230516
  6. NORDITROPIN [Suspect]
     Active Substance: SOMATROPIN
     Dosage: 0.45 MG, QD
     Route: 058
     Dates: start: 20230531
  7. NORDITROPIN [Suspect]
     Active Substance: SOMATROPIN
     Dosage: 0.35 MG, QD
     Route: 058
     Dates: start: 20210420
  8. NORDITROPIN [Suspect]
     Active Substance: SOMATROPIN
     Dosage: 0.5 MG, QD
     Route: 058
     Dates: start: 20231108
  9. NORDITROPIN [Suspect]
     Active Substance: SOMATROPIN
     Indication: Hypopituitarism
     Dosage: 0.5 MG, QD
     Route: 058
     Dates: start: 20201225
  10. LEVOTHYROXINE SODIUM [Concomitant]
     Active Substance: LEVOTHYROXINE SODIUM
     Indication: Hypopituitarism
     Dosage: 250 UG/DAY
     Route: 048
     Dates: start: 200805, end: 20240304
  11. DESMOPRESSIN ACETATE [Concomitant]
     Active Substance: DESMOPRESSIN ACETATE
     Indication: Hypopituitarism
     Dosage: 120 UG/DAY
     Route: 048
     Dates: start: 20230529, end: 20240304
  12. PREMARIN [Concomitant]
     Active Substance: ESTROGENS, CONJUGATED
     Indication: Hypopituitarism
     Dosage: 1.25 MG, QD
     Route: 048
     Dates: start: 20171117, end: 20240304
  13. PROVERA [Concomitant]
     Active Substance: MEDROXYPROGESTERONE ACETATE
     Indication: Hypopituitarism
     Dosage: UNK
     Route: 048
     Dates: start: 20171201, end: 20240304
  14. METFORMIN HYDROCHLORIDE [Concomitant]
     Active Substance: METFORMIN HYDROCHLORIDE
     Indication: Type 2 diabetes mellitus
     Dosage: 500 MG, QD
     Route: 048
     Dates: start: 20211019, end: 20240304

REACTIONS (3)
  - Sudden death [Fatal]
  - Cardio-respiratory arrest [Unknown]
  - Malaise [Recovered/Resolved]

NARRATIVE: CASE EVENT DATE: 20240301
